FAERS Safety Report 23351984 (Version 1)
Quarter: 2023Q4

REPORT INFORMATION
  Report Type: Spontaneous
  Country: ES (occurrence: ES)
  Receive Date: 20231229
  Receipt Date: 20231229
  Transmission Date: 20240109
  Serious: Yes (Other)
  Sender: FDA-Public Use
  Company Number: ES-SUN PHARMACEUTICAL INDUSTRIES LTD-2023RR-425711

PATIENT
  Age: 64 Year
  Sex: Male
  Weight: 95 kg

DRUGS (1)
  1. TILDRAKIZUMAB [Suspect]
     Active Substance: TILDRAKIZUMAB
     Indication: Psoriasis
     Dosage: 100 MILLIGRAM(S), 1 IN 84 DAY
     Route: 058
     Dates: start: 20230112

REACTIONS (1)
  - Superficial spreading melanoma stage I [Recovered/Resolved with Sequelae]

NARRATIVE: CASE EVENT DATE: 20231019
